FAERS Safety Report 5017536-5 (Version None)
Quarter: 2006Q2

REPORT INFORMATION
  Report Type: 
  Country: None (occurrence: None)
  Receive Date: 20060601
  Receipt Date: 20060601
  Transmission Date: 20061013
  Serious: Yes (Other)
  Sender: FDA-Public Use
  Company Number: None

PATIENT
  Sex: Male
  Weight: 80.6496 kg

DRUGS (2)
  1. TRAVATAN [Suspect]
     Indication: GLAUCOMA
     Dosage: 1 DROP BOTH EYES QHS
     Route: 047
     Dates: start: 20040518, end: 20060531
  2. BETAGAN [Concomitant]

REACTIONS (1)
  - CONJUNCTIVAL OEDEMA [None]
